FAERS Safety Report 7947172-X (Version None)
Quarter: 2011Q4

REPORT INFORMATION
  Report Type: 
  Country: None (occurrence: None)
  Receive Date: 20111129
  Receipt Date: 20111125
  Transmission Date: 20120403
  Serious: Yes (Hospitalization)
  Sender: FDA-Public Use
  Company Number: GB-ROCHE-788049

PATIENT
  Sex: Male
  Weight: 53.8 kg

DRUGS (7)
  1. LANSOPRAZOLE [Concomitant]
  2. DIPYRIDAMOLE [Concomitant]
     Dates: start: 20080801, end: 20110705
  3. SIMVASTATIN [Concomitant]
  4. AVASTIN [Suspect]
     Indication: COLORECTAL CANCER METASTATIC
     Dosage: DATE OF LAST DOSE PRIOR TO SAE IS 14 JUNE 2011. THERAPY TEMPORARILY INTERRUPTED
     Route: 042
     Dates: start: 20100527, end: 20110614
  5. XELODA [Suspect]
     Indication: COLORECTAL CANCER METASTATIC
     Dosage: DATE OF LAST DOSE PRIOR TOSAE 07 JUNE 2011.  THERAPY TEMPORARILY INTERRUPTED.
     Route: 048
     Dates: start: 20100527, end: 20110607
  6. ASPIRIN [Concomitant]
     Dates: start: 20080801, end: 20110705
  7. AMLODIPINE [Concomitant]

REACTIONS (2)
  - AMNESIA [None]
  - CONFUSIONAL STATE [None]
